FAERS Safety Report 4300439-9 (Version None)
Quarter: 2004Q1

REPORT INFORMATION
  Report Type: 
  Country: None (occurrence: None)
  Receive Date: 20040218
  Receipt Date: 20040211
  Transmission Date: 20041129
  Serious: Yes (Death, Life-Threatening)
  Sender: FDA-Public Use
  Company Number: HQWYE265613JAN04

PATIENT
  Age: 56 Year
  Sex: Male

DRUGS (4)
  1. TAZOCIN (PIPERACILLIN/TAZOBACTAM, INJECTION) [Suspect]
     Indication: PNEUMONIA
     Dosage: 4.5 GRAMS DAILY INTRAVENOUS
     Route: 042
     Dates: start: 20040109, end: 20040109
  2. TAZOCIN (PIPERACILLIN/TAZOBACTAM, INJECTION) [Suspect]
     Indication: PNEUMONITIS
     Dosage: 4.5 GRAMS DAILY INTRAVENOUS
     Route: 042
     Dates: start: 20040109, end: 20040109
  3. AMINOPHYLLINE (AMINOPHYLLINE), UNKNOWN [Concomitant]
  4. GLUTATHIONE (GLUTATHIONE), UNKNOWN [Concomitant]

REACTIONS (8)
  - CONCOMITANT DISEASE PROGRESSION [None]
  - CRACKLES LUNG [None]
  - CYANOSIS [None]
  - DYSPNOEA [None]
  - HAEMATURIA [None]
  - HAEMOLYSIS [None]
  - HEPATIC FUNCTION ABNORMAL [None]
  - MULTI-ORGAN FAILURE [None]
